FAERS Safety Report 24379002 (Version 1)
Quarter: 2024Q3

REPORT INFORMATION
  Report Type: Spontaneous
  Country: US (occurrence: US)
  Receive Date: 20240930
  Receipt Date: 20240930
  Transmission Date: 20241017
  Serious: Yes (Hospitalization, Other)
  Sender: MYLAN
  Company Number: US-MYLANLABS-2024M1084388

PATIENT
  Age: 79 Year
  Sex: Female
  Weight: 78.92 kg

DRUGS (10)
  1. HYDROCHLOROTHIAZIDE\VALSARTAN [Suspect]
     Active Substance: HYDROCHLOROTHIAZIDE\VALSARTAN
     Indication: Hypertension
     Dosage: 80/12.5 QD (EACH DAY IN THE MORNING)
     Route: 048
     Dates: start: 20140103, end: 20140403
  2. XANAX [Concomitant]
     Active Substance: ALPRAZOLAM
     Indication: Anxiety
     Dosage: 0.25 MILLIGRAM
     Route: 065
     Dates: start: 2022
  3. LEVOTHYROXINE [Concomitant]
     Active Substance: LEVOTHYROXINE\LEVOTHYROXINE SODIUM
     Indication: Hypertension
     Dosage: 50 MICROGRAM, QD
     Route: 065
     Dates: start: 2000
  4. OMEPRAZOLE [Concomitant]
     Active Substance: OMEPRAZOLE
     Indication: Gastrooesophageal reflux disease
     Dosage: 20 MILLIGRAM, QD
     Route: 065
     Dates: start: 20221222
  5. ADVIL [Concomitant]
     Active Substance: IBUPROFEN\IBUPROFEN SODIUM
     Indication: Pain
     Dosage: UNK
     Route: 065
  6. GABAPENTIN [Concomitant]
     Active Substance: GABAPENTIN
     Dosage: 100 MILLIGRAM, TID (AT NOON, AND IN  THE EVENING FOR 14 DAYS)
     Route: 048
  7. IBUPROFEN [Concomitant]
     Active Substance: IBUPROFEN
     Dosage: 800 MILLIGRAM (EVERY 8 (EIGHT)  HOURS IF NEEDED FOR MILD  PAIN (1-3)
     Route: 048
  8. METHOCARBAMOL [Concomitant]
     Active Substance: METHOCARBAMOL
     Indication: Muscle spasms
     Dosage: 750 MILLIGRAM (EVERY 6 (SIX)  HOURS IF NEEDED)
     Route: 048
  9. Multivitamines with iron [Concomitant]
     Dosage: 9 MILLIGRAM, QD ( 9 MG IRON-400 MCG)
     Route: 048
  10. OXYCODONE [Concomitant]
     Active Substance: OXYCODONE
     Indication: Breakthrough pain
     Dosage: 5 MILLIGRAM (EVERY 6 HOURS IF NEEDED)
     Route: 048

REACTIONS (3)
  - Colon cancer [Unknown]
  - Breast cancer [Unknown]
  - Expired product administered [Unknown]

NARRATIVE: CASE EVENT DATE: 20220701
